FAERS Safety Report 11737922 (Version 1)
Quarter: 2015Q4

REPORT INFORMATION
  Report Type: Spontaneous
  Country: US (occurrence: US)
  Receive Date: 20151110
  Receipt Date: 20151110
  Transmission Date: 20160304
  Serious: No
  Sender: FDA-Public Use
  Company Number: US-ELI_LILLY_AND_COMPANY-US201202005514

PATIENT
  Sex: Female

DRUGS (4)
  1. FORTEO [Suspect]
     Active Substance: TERIPARATIDE
     Indication: OSTEOPOROSIS
     Dosage: 20 UG, QD
     Route: 065
  2. FORTEO [Suspect]
     Active Substance: TERIPARATIDE
     Dosage: 20 UG, QD
     Route: 065
  3. PREDNISONE. [Concomitant]
     Active Substance: PREDNISONE
     Dosage: UNK, UNKNOWN
  4. FORTEO [Suspect]
     Active Substance: TERIPARATIDE
     Dosage: 20 UG, QD
     Route: 065

REACTIONS (10)
  - Pneumonia [Unknown]
  - Muscle spasms [Unknown]
  - Spinal fracture [Unknown]
  - Skin disorder [Unknown]
  - Chronic obstructive pulmonary disease [Unknown]
  - Fracture [Unknown]
  - Increased tendency to bruise [Unknown]
  - Dyspnoea [Unknown]
  - Back disorder [Unknown]
  - Pain [Unknown]
